FAERS Safety Report 11297176 (Version 1)
Quarter: 2015Q3

REPORT INFORMATION
  Report Type: Spontaneous
  Country: US (occurrence: US)
  Receive Date: 20150722
  Receipt Date: 20150722
  Transmission Date: 20151125
  Serious: No
  Sender: FDA-Public Use
  Company Number: US-ELI_LILLY_AND_COMPANY-US201103000135

PATIENT
  Sex: Female

DRUGS (4)
  1. CARDIZEM [Concomitant]
     Active Substance: DILTIAZEM HYDROCHLORIDE
     Dosage: 120 MG, DAILY (1/D)
  2. ALLOPURINOL. [Concomitant]
     Active Substance: ALLOPURINOL
     Dosage: 100 MG, DAILY (1/D)
  3. COLCHICINE. [Concomitant]
     Active Substance: COLCHICINE
     Dosage: 10 MG, DAILY (1/D)
  4. EFFIENT [Suspect]
     Active Substance: PRASUGREL HYDROCHLORIDE
     Indication: ANGIOPLASTY
     Dosage: 10 MG, DAILY (1/D)
     Route: 048
     Dates: start: 20110222

REACTIONS (5)
  - Headache [Unknown]
  - Heart rate increased [Unknown]
  - Abdominal pain upper [Unknown]
  - Contusion [Unknown]
  - Malaise [Unknown]
